FAERS Safety Report 5532385-7 (Version None)
Quarter: 2007Q4

REPORT INFORMATION
  Report Type: 
  Country: None (occurrence: None)
  Receive Date: 20071203
  Receipt Date: 20071128
  Transmission Date: 20080405
  Serious: Yes (Death, Hospitalization)
  Sender: FDA-Public Use
  Company Number: CA-ROXANE LABORATORIES, INC-2007-BP-25136RO

PATIENT
  Age: 85 Year
  Sex: Male

DRUGS (7)
  1. AZATHIOPRINE [Suspect]
     Indication: IDIOPATHIC PULMONARY FIBROSIS
  2. PREDNISONE TAB [Suspect]
     Indication: IDIOPATHIC PULMONARY FIBROSIS
  3. BECLOMETHASONE DIPROPIONATE [Concomitant]
     Route: 055
  4. NADOLOL [Concomitant]
  5. HYDROCHLOROTHIAZIDE [Concomitant]
  6. NEUPOGEN [Concomitant]
     Indication: EVIDENCE BASED TREATMENT
  7. BROAD SPECTRUM ANTIBIOTICS [Concomitant]
     Indication: EVIDENCE BASED TREATMENT

REACTIONS (6)
  - ACUTE RESPIRATORY FAILURE [None]
  - BLOOD CREATININE INCREASED [None]
  - GENE MUTATION [None]
  - PANCYTOPENIA [None]
  - PULMONARY ALVEOLAR HAEMORRHAGE [None]
  - STAPHYLOCOCCAL INFECTION [None]
